FAERS Safety Report 13731591 (Version 1)
Quarter: 2017Q3

REPORT INFORMATION
  Report Type: Other
  Country: None (occurrence: US)
  Receive Date: 20170707
  Receipt Date: 20170707
  Transmission Date: 20171127
  Serious: Yes (Other)
  Sender: FDA-Public Use
  Company Number: US-GUTHY-RENKER LLC-2023087

PATIENT
  Age: 52 Year
  Sex: Female

DRUGS (2)
  1. PROACTIV REPAIRING TREATMENT [Suspect]
     Active Substance: BENZOYL PEROXIDE
     Route: 061
     Dates: start: 20160205, end: 20160205
  2. PROACTIV SOLUTION RENEWING CLEANSER [Suspect]
     Active Substance: BENZOYL PEROXIDE
     Indication: ACNE
     Route: 061
     Dates: start: 20160205, end: 20160205

REACTIONS (4)
  - Rash macular [Recovering/Resolving]
  - Generalised erythema [None]
  - Application site erythema [None]
  - Feeling hot [None]

NARRATIVE: CASE EVENT DATE: 20160205
